FAERS Safety Report 4429046-4 (Version None)
Quarter: 2004Q3

REPORT INFORMATION
  Report Type: 
  Country: None (occurrence: None)
  Receive Date: 20040726
  Receipt Date: 20040308
  Transmission Date: 20050211
  Serious: No
  Sender: FDA-Public Use
  Company Number: USA040361399

PATIENT
  Age: 80 Year
  Sex: Female

DRUGS (9)
  1. FORTEO [Suspect]
     Indication: OSTEOPOROSIS
     Dates: start: 20040214
  2. ZOCOR [Concomitant]
  3. PLAQUENIL [Concomitant]
  4. TYLENOL [Concomitant]
  5. SERZONE [Concomitant]
  6. GLUCOSAMINE CHONDROITIN [Concomitant]
  7. VALIUM [Concomitant]
  8. SYNTHROID [Concomitant]
  9. NEXIUM [Concomitant]

REACTIONS (5)
  - ABDOMINAL DISTENSION [None]
  - ACTIVITIES OF DAILY LIVING IMPAIRED [None]
  - ASTHENIA [None]
  - CONSTIPATION [None]
  - FEELING ABNORMAL [None]
